FAERS Safety Report 22069369 (Version 6)
Quarter: 2024Q1

REPORT INFORMATION
  Report Type: Report from Study
  Country: US (occurrence: US)
  Receive Date: 20230307
  Receipt Date: 20240117
  Transmission Date: 20240410
  Serious: Yes (Other)
  Sender: FDA-Public Use
  Company Number: US-002147023-NVSC2022US303565

PATIENT
  Sex: Female

DRUGS (1)
  1. KESIMPTA [Suspect]
     Active Substance: OFATUMUMAB
     Indication: Multiple sclerosis
     Dosage: 20 MG, QMO
     Route: 058
     Dates: start: 20220920

REACTIONS (4)
  - Multiple sclerosis relapse [Unknown]
  - Temperature intolerance [Unknown]
  - Exercise tolerance decreased [Unknown]
  - Inappropriate schedule of product administration [Unknown]
